FAERS Safety Report 21079265 (Version 1)
Quarter: 2022Q3

REPORT INFORMATION
  Report Type: Spontaneous
  Country: PT (occurrence: PT)
  Receive Date: 20220714
  Receipt Date: 20220714
  Transmission Date: 20221026
  Serious: Yes (Other)
  Sender: FDA-Public Use
  Company Number: PT-002147023-NVSC2022PT144646

PATIENT
  Age: 37 Year
  Sex: Female

DRUGS (3)
  1. LETROZOLE [Suspect]
     Active Substance: LETROZOLE
     Indication: Metastatic neoplasm
     Dosage: 400 MG
     Route: 065
  2. LETROZOLE [Suspect]
     Active Substance: LETROZOLE
     Dosage: 2.5 MG (DAY)
     Route: 065
     Dates: start: 201809
  3. RIBOCICLIB [Suspect]
     Active Substance: RIBOCICLIB
     Indication: Metastases to bone
     Dosage: 600 MILLIGRAM, ONCE A DAY (600 MG, QD (FOR 21 DAYS))
     Route: 065
     Dates: start: 201809

REACTIONS (5)
  - Neutropenia [Unknown]
  - Asthenia [Unknown]
  - Tumour marker increased [Unknown]
  - Arthralgia [Unknown]
  - Product use in unapproved indication [Unknown]
